FAERS Safety Report 14093467 (Version 1)
Quarter: 2017Q4

REPORT INFORMATION
  Report Type: Spontaneous
  Country: US (occurrence: US)
  Receive Date: 20171016
  Receipt Date: 20171016
  Transmission Date: 20180321
  Serious: Yes (Other)
  Sender: FDA-Public Use
  Company Number: None

PATIENT
  Age: 61 Year
  Sex: Female

DRUGS (11)
  1. ASPIRIN. [Concomitant]
     Active Substance: ASPIRIN
  2. MAGNESIUM [Concomitant]
     Active Substance: MAGNESIUM
  3. IBUPROFEN. [Concomitant]
     Active Substance: IBUPROFEN
  4. PROLIA [Concomitant]
     Active Substance: DENOSUMAB
  5. REPATHA [Suspect]
     Active Substance: EVOLOCUMAB
     Indication: HYPERLIPIDAEMIA
     Dosage: ?          OTHER FREQUENCY:EVERY TWO WEEKS;?
     Route: 058
  6. REPATHA [Suspect]
     Active Substance: EVOLOCUMAB
     Indication: ARTERIOSCLEROSIS
     Dosage: ?          OTHER FREQUENCY:EVERY TWO WEEKS;?
     Route: 058
  7. CALCIUM + D [Concomitant]
     Active Substance: CALCIUM\VITAMIN D
  8. FLONASE [Concomitant]
     Active Substance: FLUTICASONE PROPIONATE
  9. GABAPENTIN. [Concomitant]
     Active Substance: GABAPENTIN
  10. ZADITOR EYE DROPS [Concomitant]
  11. ZYRTEC [Concomitant]
     Active Substance: CETIRIZINE HYDROCHLORIDE

REACTIONS (2)
  - Alopecia [None]
  - Weight increased [None]

NARRATIVE: CASE EVENT DATE: 20171013
